FAERS Safety Report 10140194 (Version 1)
Quarter: 2014Q2

REPORT INFORMATION
  Report Type: Spontaneous
  Country: GB (occurrence: GB)
  Receive Date: 20140429
  Receipt Date: 20140429
  Transmission Date: 20141212
  Serious: Yes (Disabling)
  Sender: FDA-Public Use
  Company Number: GB-PFIZER INC-2014114954

PATIENT
  Age: 69 Year
  Sex: Female
  Weight: 14 kg

DRUGS (4)
  1. AMLODIPINE BESILATE [Suspect]
     Indication: HYPERTENSION
     Dosage: 1 DF, 1X/DAY
     Route: 048
     Dates: start: 20140319, end: 20140410
  2. ANASTROZOLE [Concomitant]
  3. LANSOPRAZOLE [Concomitant]
  4. PARACETAMOL [Concomitant]

REACTIONS (7)
  - Headache [Recovering/Resolving]
  - Myalgia [Recovering/Resolving]
  - Bone pain [Recovering/Resolving]
  - Dyspepsia [Recovering/Resolving]
  - Insomnia [Recovering/Resolving]
  - Depression [Recovering/Resolving]
  - Asthenia [Recovering/Resolving]
